FAERS Safety Report 8846300 (Version 2)
Quarter: 2012Q4

REPORT INFORMATION
  Report Type: 
  Country: US (occurrence: US)
  Receive Date: 20121018
  Receipt Date: 20121224
  Transmission Date: 20130627
  Serious: Yes (Hospitalization)
  Sender: FDA-Public Use
  Company Number: US-BIOGENIDEC-2012BI043707

PATIENT
  Sex: Male
  Weight: 64 kg

DRUGS (14)
  1. TYSABRI [Suspect]
     Indication: MULTIPLE SCLEROSIS
     Route: 042
     Dates: start: 20120410
  2. AVONEX [Concomitant]
     Indication: MULTIPLE SCLEROSIS
     Route: 030
     Dates: start: 20111023
  3. AVONEX [Concomitant]
     Indication: MULTIPLE SCLEROSIS
     Route: 030
     Dates: start: 20100318, end: 20110307
  4. COPAXONE [Concomitant]
     Dosage: Dose unit:20
  5. OXYBUTYNIN CHLORIDE [Concomitant]
  6. TIZANIDINE HCL [Concomitant]
  7. WELLBUTRIN XL [Concomitant]
  8. ALPRAZOLAM [Concomitant]
  9. OMEPRAZOLE [Concomitant]
  10. ZANTAC [Concomitant]
  11. LIPITOR [Concomitant]
  12. ZOLPIDEM TARTRATE [Concomitant]
  13. CALCARB 600/D [Concomitant]
  14. CRANBERRY [Concomitant]

REACTIONS (5)
  - Multiple sclerosis [Unknown]
  - Urinary tract infection [Unknown]
  - Muscle spasms [Unknown]
  - Vitamin B12 deficiency [Unknown]
  - Aphagia [Recovered/Resolved]
